FAERS Safety Report 24346865 (Version 1)
Quarter: 2024Q3

REPORT INFORMATION
  Report Type: Report from Study
  Country: CA (occurrence: CA)
  Receive Date: 20240921
  Receipt Date: 20240921
  Transmission Date: 20241017
  Serious: Yes (Hospitalization)
  Sender: ROCHE
  Company Number: CA-ROCHE-10000082233

PATIENT
  Age: 85 Year
  Sex: Male

DRUGS (1)
  1. VABYSMO [Suspect]
     Active Substance: FARICIMAB\FARICIMAB-SVOA
     Indication: Retinal vein occlusion
     Dosage: 6MG/0.05ML
     Route: 050
     Dates: start: 20240829

REACTIONS (2)
  - Intestinal haemorrhage [Unknown]
  - Asthenia [Unknown]
